FAERS Safety Report 4347236-6 (Version None)
Quarter: 2004Q2

REPORT INFORMATION
  Report Type: 
  Country: None (occurrence: None)
  Receive Date: 20040426
  Receipt Date: 20030224
  Transmission Date: 20050107
  Serious: Yes (Life-Threatening)
  Sender: FDA-Public Use
  Company Number: CH-MERCK-0302CHE00026

PATIENT
  Age: 42 Year
  Sex: Female
  Weight: 67 kg

DRUGS (5)
  1. ACETAMINOPHEN [Concomitant]
     Route: 065
  2. NADROPARIN [Concomitant]
     Indication: THROMBOSIS PROPHYLAXIS
     Route: 058
     Dates: start: 20021125, end: 20021211
  3. VIOXX [Suspect]
     Indication: RADICULOPATHY
     Route: 048
     Dates: start: 20021126, end: 20021211
  4. TIZANIDINE HYDROCHLORIDE [Concomitant]
     Route: 065
  5. TRAMADOL HYDROCHLORIDE [Concomitant]
     Route: 065

REACTIONS (2)
  - GASTROINTESTINAL PAIN [None]
  - HEPATOCELLULAR DAMAGE [None]
